FAERS Safety Report 22129318 (Version 1)
Quarter: 2023Q1

REPORT INFORMATION
  Report Type: Spontaneous
  Country: GB (occurrence: GB)
  Receive Date: 20230323
  Receipt Date: 20230323
  Transmission Date: 20230417
  Serious: Yes (Hospitalization, Other)
  Sender: FDA-Public Use
  Company Number: GB-MHRA-MED-202301131147536130-BDMSV

PATIENT
  Age: 10 Year
  Sex: Male

DRUGS (1)
  1. MIRTAZAPINE [Suspect]
     Active Substance: MIRTAZAPINE
     Indication: Product used for unknown indication
     Dosage: 15 MILLIGRAM, ONCE A DAY (EVERY MORNING;)
     Route: 065

REACTIONS (5)
  - Malaise [Recovering/Resolving]
  - Somnolence [Recovering/Resolving]
  - Hospitalisation [Recovered/Resolved]
  - Medication error [Unknown]
  - Product dispensing error [Unknown]
